FAERS Safety Report 23189383 (Version 1)
Quarter: 2023Q4

REPORT INFORMATION
  Report Type: Spontaneous
  Country: US (occurrence: US)
  Receive Date: 20231116
  Receipt Date: 20231116
  Transmission Date: 20240110
  Serious: No
  Sender: FDA-Public Use
  Company Number: US-CHIESI-2023CHF03404

PATIENT
  Sex: Female

DRUGS (11)
  1. BETHKIS [Suspect]
     Active Substance: TOBRAMYCIN
     Indication: Chronic respiratory failure
     Dosage: 1 DOSAGE FORM, BID
     Route: 055
  2. BETHKIS [Suspect]
     Active Substance: TOBRAMYCIN
     Indication: Hypoxia
  3. BETHKIS [Suspect]
     Active Substance: TOBRAMYCIN
     Indication: Hypercapnia
  4. BETHKIS [Suspect]
     Active Substance: TOBRAMYCIN
     Indication: Off label use
  5. TYLENOL [Concomitant]
     Active Substance: ACETAMINOPHEN
     Indication: Product used for unknown indication
     Dosage: UNK
  6. KEPPRA [Concomitant]
     Active Substance: LEVETIRACETAM
     Indication: Product used for unknown indication
     Dosage: UNK
  7. GLYCOPYRROLATE [Concomitant]
     Active Substance: GLYCOPYRROLATE
     Indication: Product used for unknown indication
     Dosage: UNK
  8. ALBUTEROL [Concomitant]
     Active Substance: ALBUTEROL
     Indication: Product used for unknown indication
     Dosage: UNK
  9. PULMICORT TURBUHALER [Concomitant]
     Active Substance: BUDESONIDE
     Indication: Product used for unknown indication
     Dosage: UNK
  10. LORAZEPAM [Concomitant]
     Active Substance: LORAZEPAM
     Indication: Product used for unknown indication
     Dosage: UNK
  11. MIRALAX [Concomitant]
     Active Substance: POLYETHYLENE GLYCOL 3350
     Indication: Product used for unknown indication
     Dosage: UNK

REACTIONS (1)
  - Off label use [Unknown]
